FAERS Safety Report 6221880-3 (Version None)
Quarter: 2009Q2

REPORT INFORMATION
  Report Type: 
  Country: None (occurrence: None)
  Receive Date: 20090609
  Receipt Date: 20090609
  Transmission Date: 20091009
  Serious: Yes (Hospitalization)
  Sender: FDA-Public Use
  Company Number: None

PATIENT
  Sex: Male
  Weight: 77.1115 kg

DRUGS (1)
  1. DIGOXIN [Suspect]
     Dosage: 0.25 MG. 2 DAILY
     Dates: start: 20090101, end: 20090201

REACTIONS (4)
  - CEREBROVASCULAR ACCIDENT [None]
  - OVERDOSE [None]
  - PRODUCT QUALITY ISSUE [None]
  - WALKING AID USER [None]
